FAERS Safety Report 25445226 (Version 1)
Quarter: 2025Q2

REPORT INFORMATION
  Report Type: Spontaneous
  Country: ES (occurrence: ES)
  Receive Date: 20250617
  Receipt Date: 20250617
  Transmission Date: 20250717
  Serious: Yes (Hospitalization, Other)
  Sender: SCIEGEN PHARMACEUTICALS INC
  Company Number: ES-SCIEGENP-2025SCLIT00138

PATIENT
  Age: 60 Year
  Sex: Female

DRUGS (2)
  1. RALOXIFENE HYDROCHLORIDE [Suspect]
     Active Substance: RALOXIFENE HYDROCHLORIDE
     Indication: Osteoporosis
     Route: 065
  2. FENOFIBRATE [Suspect]
     Active Substance: FENOFIBRATE
     Indication: Hyperlipidaemia
     Route: 065

REACTIONS (2)
  - Drug reaction with eosinophilia and systemic symptoms [Unknown]
  - Drug-induced liver injury [Unknown]
